FAERS Safety Report 7742506-3 (Version None)
Quarter: 2011Q3

REPORT INFORMATION
  Report Type: 
  Country: None (occurrence: None)
  Receive Date: 20110908
  Receipt Date: 20110908
  Transmission Date: 20111222
  Serious: Yes (Hospitalization)
  Sender: FDA-Public Use
  Company Number: None

PATIENT
  Age: 55 Year
  Sex: Male
  Weight: 93.2 kg

DRUGS (2)
  1. RISPERIDONE [Suspect]
     Indication: BIPOLAR DISORDER
     Dosage: 3 MG HS PO
     Route: 048
     Dates: start: 20110602, end: 20110831
  2. CLONAZEPAM [Suspect]
     Indication: ANXIETY
     Dosage: 0.5 MG BID PO
     Route: 048
     Dates: start: 20110602, end: 20110831

REACTIONS (1)
  - HYPOTENSION [None]
